FAERS Safety Report 8889076 (Version 2)
Quarter: 2012Q4

REPORT INFORMATION
  Report Type: Report from Study
  Country: US (occurrence: US)
  Receive Date: 20121106
  Receipt Date: 20121116
  Transmission Date: 20130627
  Serious: Yes (Hospitalization)
  Sender: FDA-Public Use
  Company Number: US-TEVA-366786USA

PATIENT
  Age: 57 Year
  Sex: Male
  Weight: 114 kg

DRUGS (17)
  1. TREANDA [Suspect]
     Indication: LYMPHOMA
     Route: 042
     Dates: start: 20110405, end: 20110405
  2. TREANDA [Suspect]
     Route: 042
     Dates: start: 20110406, end: 20110406
  3. BORTEZOMIB [Suspect]
     Indication: LYMPHOMA
     Route: 042
     Dates: start: 20110405, end: 20110405
  4. BORTEZOMIB [Suspect]
     Route: 042
     Dates: start: 20110412, end: 20110412
  5. RITUXIMAB [Suspect]
     Indication: LYMPHOMA
     Route: 042
     Dates: start: 20110405, end: 20110412
  6. PROCET [Concomitant]
     Dosage: 10/100 mg
     Route: 048
     Dates: start: 20100524
  7. COUMADIN [Concomitant]
     Route: 048
     Dates: start: 20111118
  8. COUMADIN [Concomitant]
     Route: 048
     Dates: start: 20111118
  9. ROBAXIN [Concomitant]
     Route: 048
     Dates: start: 20100524
  10. PRILOSEC [Concomitant]
     Dosage: 20 Milligram Daily;
     Route: 048
     Dates: start: 20100524
  11. TRILIPLA ECC [Concomitant]
     Dosage: 1 Tablet Daily;
     Route: 048
     Dates: start: 20100524
  12. NEURONTIN [Concomitant]
     Dosage: 100 Milligram Daily;
     Dates: start: 20100524
  13. ACYCLOVIR [Concomitant]
     Dosage: 800 Milligram Daily;
     Dates: start: 20110504
  14. METHADONE [Concomitant]
     Dosage: 60 Milligram Daily;
     Route: 048
     Dates: start: 20110524
  15. EMLA [Concomitant]
     Dates: start: 20110228
  16. COMPAZINE [Concomitant]
     Dosage: Q6H
     Route: 048
     Dates: start: 20110405
  17. ZOFRAN [Concomitant]
     Dosage: Q8H
     Route: 048
     Dates: start: 20110412

REACTIONS (3)
  - Arthralgia [Recovered/Resolved]
  - Pyrexia [Recovered/Resolved]
  - Erythema multiforme [Recovered/Resolved]
